FAERS Safety Report 6994695-6 (Version None)
Quarter: 2010Q3

REPORT INFORMATION
  Report Type: 
  Country: None (occurrence: None)
  Receive Date: 20100917
  Receipt Date: 20090708
  Transmission Date: 20110219
  Serious: Yes (Hospitalization, Other)
  Sender: FDA-Public Use
  Company Number: HQ3432922JUL2002

PATIENT
  Sex: Female
  Weight: 50.39 kg

DRUGS (7)
  1. PREMPRO [Suspect]
     Indication: HORMONE REPLACEMENT THERAPY
     Dosage: 0.625MG /2.5MG
     Route: 048
     Dates: start: 20010601, end: 20020601
  2. MEDROXYPROGESTERONE ACETATE [Suspect]
     Dosage: UNSPECIFIED
     Route: 048
     Dates: start: 19910101, end: 20010101
  3. SPIRIVA [Concomitant]
  4. ACETYLSALICYLIC ACID [Concomitant]
     Indication: ARTHRALGIA
  5. ORCIPRENALINE SULFATE [Concomitant]
  6. CONJUGATED ESTROGENS [Suspect]
     Dosage: UNSPECIFIED DOSAGE
     Route: 048
     Dates: start: 19910101, end: 20010101
  7. ALBUTEROL SULFATE AUTOHALER [Concomitant]
     Dosage: 2 PUFFS /4-5 TIMES DAILY
     Route: 055

REACTIONS (2)
  - BREAST CANCER FEMALE [None]
  - BREAST PAIN [None]
